FAERS Safety Report 11141017 (Version 1)
Quarter: 2015Q2

REPORT INFORMATION
  Report Type: Spontaneous
  Country: US (occurrence: None)
  Receive Date: 20150526
  Receipt Date: 20150526
  Transmission Date: 20150821
  Serious: Yes (Life-Threatening, Disabling)
  Sender: FDA-Public Use
  Company Number: None

PATIENT
  Age: 39 Year
  Sex: Female
  Weight: 56.7 kg

DRUGS (4)
  1. FISH OIL [Concomitant]
     Active Substance: FISH OIL
  2. ZINC [Concomitant]
     Active Substance: ZINC\ZINC CHLORIDE
  3. PREMARIN [Suspect]
     Active Substance: ESTROGENS, CONJUGATED
     Indication: MENOPAUSE
     Dosage: 1.25 M8?1  866 TABLET ?ONCE DAILY ?MOUTH??1  25M8?1 CAPSULE SP14398?25 DAYS MONTHLY ?MOUTH
     Route: 048
  4. BABY ASPIRIN [Concomitant]
     Active Substance: ASPIRIN

REACTIONS (3)
  - Bulbar poliomyelitis [None]
  - Pneumonia legionella [None]
  - Weight increased [None]

NARRATIVE: CASE EVENT DATE: 19710402
